FAERS Safety Report 8228179-4 (Version None)
Quarter: 2012Q1

REPORT INFORMATION
  Report Type: 
  Country: None (occurrence: None)
  Receive Date: 20120322
  Receipt Date: 20111208
  Transmission Date: 20120608
  Serious: No
  Sender: FDA-Public Use
  Company Number: US-BRISTOL-MYERS SQUIBB COMPANY-16280695

PATIENT
  Age: 68 Year
  Sex: Female

DRUGS (1)
  1. ERBITUX [Suspect]
     Dosage: LAST DOSE SCHEDULED ON 29-SEP-2011 AND HELD DUE TO STENT REPLACEMENT SURGERY.

REACTIONS (3)
  - HAEMORRHAGE [None]
  - SKIN DISORDER [None]
  - ACNE [None]
